FAERS Safety Report 9569575 (Version 2)
Quarter: 2013Q3

REPORT INFORMATION
  Report Type: Spontaneous
  Country: US (occurrence: US)
  Receive Date: 20130930
  Receipt Date: 20130930
  Transmission Date: 20140515
  Serious: No
  Sender: FDA-Public Use
  Company Number: US-AMGEN-USASP2013055414

PATIENT
  Age: 34 Year
  Sex: Female
  Weight: 141.4 kg

DRUGS (2)
  1. ENBREL [Suspect]
     Indication: PSORIASIS
     Dosage: 50 MG, QWK
     Route: 058
     Dates: start: 20030225, end: 201305
  2. REMICADE [Concomitant]
     Dosage: UNK

REACTIONS (2)
  - Drug ineffective [Recovered/Resolved]
  - Psoriasis [Recovered/Resolved]
